FAERS Safety Report 7470182-6 (Version None)
Quarter: 2011Q2

REPORT INFORMATION
  Report Type: 
  Country: None (occurrence: None)
  Receive Date: 20110510
  Receipt Date: 20110503
  Transmission Date: 20111010
  Serious: Yes (Hospitalization)
  Sender: FDA-Public Use
  Company Number: B0718024A

PATIENT
  Sex: Male
  Weight: 65 kg

DRUGS (3)
  1. LENALIDOMIDE [Suspect]
     Indication: MULTIPLE MYELOMA
     Dosage: 10MG TWICE PER DAY
     Route: 048
     Dates: start: 20070806, end: 20071126
  2. MELPHALAN HYDROCHLORIDE [Suspect]
     Indication: MULTIPLE MYELOMA
     Dosage: 12MG PER DAY
     Route: 048
     Dates: start: 20070806, end: 20071126
  3. PREDNISOLONE [Suspect]
     Indication: MULTIPLE MYELOMA
     Dosage: 130MG PER DAY
     Route: 048
     Dates: start: 20070806, end: 20071126

REACTIONS (1)
  - DEEP VEIN THROMBOSIS [None]
